FAERS Safety Report 7504375-6 (Version None)
Quarter: 2011Q2

REPORT INFORMATION
  Report Type: 
  Country: None (occurrence: None)
  Receive Date: 20110525
  Receipt Date: 20110512
  Transmission Date: 20111010
  Serious: Yes (Hospitalization)
  Sender: FDA-Public Use
  Company Number: GB-UCBSA-032719

PATIENT
  Sex: Female

DRUGS (6)
  1. IBANDRONATE SODIUM [Concomitant]
     Route: 048
  2. TRAMADOL HCL [Concomitant]
     Route: 048
  3. CIMZIA [Suspect]
     Indication: RHEUMATOID ARTHRITIS
     Route: 058
     Dates: start: 20110408, end: 20110422
  4. MELOXICAM [Concomitant]
     Route: 048
  5. OMEPRAZOLE [Concomitant]
     Route: 048
  6. PREDNISOLONE [Concomitant]
     Route: 048

REACTIONS (3)
  - JOINT SWELLING [None]
  - ARTHRALGIA [None]
  - ARTHRITIS BACTERIAL [None]
